FAERS Safety Report 8538997-0 (Version None)
Quarter: 2012Q3

REPORT INFORMATION
  Report Type: 
  Country: None (occurrence: None)
  Receive Date: 20120726
  Receipt Date: 20120723
  Transmission Date: 20120928
  Serious: No
  Sender: FDA-Public Use
  Company Number: PHEH2011US01510

PATIENT
  Sex: Female
  Weight: 75.737 kg

DRUGS (20)
  1. VITAMIN B-12 [Concomitant]
  2. LOSARTAN POTASSIUM [Concomitant]
  3. LISINOPRIL AND HYDROCHLOROTHIAZIDE [Concomitant]
  4. FISH OIL [Concomitant]
  5. VITAMIN E [Concomitant]
  6. ALLOPURINOL [Concomitant]
     Indication: GOUT
     Dosage: 300 MG, QD
     Route: 048
  7. AMLODIPINE [Concomitant]
     Dosage: 5 MG, QD
  8. CHROMIUM PICOLINATE [Concomitant]
  9. VITAMIN B6 [Concomitant]
  10. TEA, GREEN [Concomitant]
  11. ZINC SULFATE [Concomitant]
  12. TASIGNA [Suspect]
     Indication: CHRONIC MYELOID LEUKAEMIA
     Dosage: 300 MG, BID
     Route: 048
     Dates: start: 20110528
  13. CALCIUM [Concomitant]
  14. OMEPRAZOLE [Concomitant]
     Dosage: 20 MG, QD
     Route: 048
  15. CRESTOR [Concomitant]
     Route: 048
  16. ASPIRIN [Concomitant]
  17. FOLIC ACID [Concomitant]
  18. ASCORBIC ACID [Concomitant]
  19. HYDROXYUREA [Concomitant]
     Indication: CHRONIC MYELOID LEUKAEMIA
     Dosage: 500 MG, BID
     Route: 048
  20. BIOTIN [Concomitant]

REACTIONS (5)
  - INNER EAR DISORDER [None]
  - BACK PAIN [None]
  - ALOPECIA [None]
  - NAUSEA [None]
  - COUGH [None]
